FAERS Safety Report 15950969 (Version 10)
Quarter: 2019Q3

REPORT INFORMATION
  Report Type: Report from Study
  Country: US (occurrence: US)
  Receive Date: 20190212
  Receipt Date: 20190718
  Transmission Date: 20191004
  Serious: Yes (Hospitalization)
  Sender: FDA-Public Use
  Company Number: US-ACTELION-A-US2018-180262

PATIENT
  Age: 64 Year
  Sex: Female
  Weight: 86.17 kg

DRUGS (7)
  1. OXYGEN. [Concomitant]
     Active Substance: OXYGEN
     Dosage: 8 LITER
  2. ADEMPAS [Concomitant]
     Active Substance: RIOCIGUAT
  3. OPSUMIT [Suspect]
     Active Substance: MACITENTAN
     Indication: PULMONARY ARTERIAL HYPERTENSION
     Dosage: 10 MG, QD
     Route: 048
  4. XARELTO [Concomitant]
     Active Substance: RIVAROXABAN
  5. WARFARIN [Concomitant]
     Active Substance: WARFARIN
  6. REMODULIN [Suspect]
     Active Substance: TREPROSTINIL
     Indication: PRODUCT USED FOR UNKNOWN INDICATION
     Dosage: 2 NG/KG, PER MIN
     Route: 058
  7. OXYGEN. [Concomitant]
     Active Substance: OXYGEN
     Dosage: 15 LITER

REACTIONS (47)
  - Pulmonary arterial hypertension [Unknown]
  - Carbon dioxide abnormal [Unknown]
  - Blood potassium decreased [Unknown]
  - Oxygen saturation decreased [Unknown]
  - Heart disease congenital [Unknown]
  - Respiratory tract congestion [Unknown]
  - Myalgia [Recovering/Resolving]
  - Blood disorder [Unknown]
  - Blood potassium increased [Unknown]
  - Pulmonary oedema [Unknown]
  - Cardiac operation [Unknown]
  - Catheter site erythema [Unknown]
  - Viral infection [Unknown]
  - Heart rate irregular [Unknown]
  - Dyspnoea exertional [Unknown]
  - Bloody discharge [Unknown]
  - Pain in jaw [Recovering/Resolving]
  - Malaise [Recovering/Resolving]
  - Adverse drug reaction [Recovering/Resolving]
  - Pneumonia [Unknown]
  - Blood pressure decreased [Unknown]
  - Fluid retention [Unknown]
  - Pulmonary hypertension [Unknown]
  - Fatigue [Unknown]
  - Unevaluable event [Unknown]
  - Thyroid disorder [Unknown]
  - Hypertension [Unknown]
  - Influenza [Recovering/Resolving]
  - Catheter site oedema [Unknown]
  - Catheter site pruritus [Unknown]
  - Weight decreased [Unknown]
  - Hypotension [Unknown]
  - Injection site haemorrhage [Recovered/Resolved]
  - Transplant evaluation [Unknown]
  - Renal disorder [Unknown]
  - Pleural effusion [Unknown]
  - Atrial fibrillation [Unknown]
  - Taste disorder [Unknown]
  - Decreased appetite [Recovering/Resolving]
  - Asthenia [Unknown]
  - Bronchitis [Unknown]
  - Loss of consciousness [Unknown]
  - Headache [Recovered/Resolved]
  - Productive cough [Unknown]
  - Diarrhoea [Recovering/Resolving]
  - Injection site pain [Recovering/Resolving]
  - Catheter site infection [Unknown]

NARRATIVE: CASE EVENT DATE: 20190129
